FAERS Safety Report 4900362-2 (Version None)
Quarter: 2006Q1

REPORT INFORMATION
  Report Type: 
  Country: None (occurrence: None)
  Receive Date: 20060203
  Receipt Date: 20060117
  Transmission Date: 20060701
  Serious: Yes (Hospitalization)
  Sender: FDA-Public Use
  Company Number: JP-BRISTOL-MYERS SQUIBB COMPANY-13259197

PATIENT
  Age: 56 Year
  Sex: Male

DRUGS (5)
  1. EFAVIRENZ [Suspect]
     Indication: ACQUIRED IMMUNODEFICIENCY SYNDROME
     Route: 048
     Dates: start: 20051221, end: 20051227
  2. VIREAD [Suspect]
     Route: 048
     Dates: start: 20051221, end: 20051230
  3. DIFLUCAN [Concomitant]
     Dates: start: 20051221
  4. EPIVIR [Concomitant]
     Dates: start: 20051221, end: 20051230
  5. COTRIM [Concomitant]
     Dates: start: 20051221

REACTIONS (4)
  - APATHY [None]
  - DEPRESSED LEVEL OF CONSCIOUSNESS [None]
  - LISTLESS [None]
  - RENAL DISORDER [None]
